FAERS Safety Report 14168231 (Version 3)
Quarter: 2019Q3

REPORT INFORMATION
  Report Type: Spontaneous
  Country: US (occurrence: US)
  Receive Date: 20171107
  Receipt Date: 20190924
  Transmission Date: 20191004
  Serious: No
  Sender: FDA-Public Use
  Company Number: US-SA-2017SA104105

PATIENT
  Age: 50 Year
  Sex: Female

DRUGS (3)
  1. TOUJEO [Suspect]
     Active Substance: INSULIN GLARGINE
     Dosage: 54 U, BID
     Route: 065
  2. TOUJEO [Suspect]
     Active Substance: INSULIN GLARGINE
     Indication: TYPE 2 DIABETES MELLITUS
     Dosage: 54 UNITS IN THE MORNING 90 UNITS AT NIGHT
     Route: 051
     Dates: start: 20160329
  3. TOUJEO [Suspect]
     Active Substance: INSULIN GLARGINE
     Dosage: 54 UNITS IN THE MORNING 90 UNITS AT NIGHT
     Route: 051
     Dates: start: 20160329

REACTIONS (2)
  - Inappropriate schedule of product administration [Unknown]
  - Bronchitis [Unknown]
